FAERS Safety Report 6543665-0 (Version None)
Quarter: 2010Q1

REPORT INFORMATION
  Report Type: 
  Country: None (occurrence: None)
  Receive Date: 20100120
  Receipt Date: 20100105
  Transmission Date: 20100710
  Serious: Yes (Other)
  Sender: FDA-Public Use
  Company Number: CA-GENENTECH-289897

PATIENT
  Sex: Female
  Weight: 88 kg

DRUGS (3)
  1. XOLAIR [Suspect]
     Indication: ASTHMA
     Dosage: 450 MG, Q2W
     Route: 058
     Dates: start: 20051111
  2. XOLAIR [Suspect]
     Dosage: 450 MG, Q2W
     Route: 058
     Dates: start: 20090818
  3. XOLAIR [Suspect]
     Dosage: 450 MG, Q2W
     Route: 058
     Dates: start: 20091026

REACTIONS (2)
  - FATIGUE [None]
  - INFECTIOUS MONONUCLEOSIS [None]
